APPROVED DRUG PRODUCT: FEMTRACE
Active Ingredient: ESTRADIOL ACETATE
Strength: 0.45MG
Dosage Form/Route: TABLET;ORAL
Application: N021633 | Product #001
Applicant: ALLERGAN PHARMACEUTICALS INTERNATIONAL LTD
Approved: Aug 20, 2004 | RLD: Yes | RS: No | Type: DISCN